FAERS Safety Report 15353467 (Version 2)
Quarter: 2018Q3

REPORT INFORMATION
  Report Type: Report from Study
  Country: US (occurrence: US)
  Receive Date: 20180905
  Receipt Date: 20180918
  Transmission Date: 20181010
  Serious: Yes (Other)
  Sender: FDA-Public Use
  Company Number: US-ACTELION-A-NJ2018-175335

PATIENT
  Age: 74 Year
  Sex: Female
  Weight: 49.89 kg

DRUGS (5)
  1. SILDENAFIL CITRATE. [Concomitant]
     Active Substance: SILDENAFIL CITRATE
  2. OPSUMIT [Suspect]
     Active Substance: MACITENTAN
     Indication: PULMONARY ARTERIAL HYPERTENSION
     Dosage: 10 MG, QD
     Route: 048
  3. COUMADIN [Concomitant]
     Active Substance: WARFARIN SODIUM
  4. ADCIRCA [Suspect]
     Active Substance: TADALAFIL
     Indication: PRODUCT USED FOR UNKNOWN INDICATION
     Dosage: UNK
     Route: 065
  5. REMODULIN [Concomitant]
     Active Substance: TREPROSTINIL

REACTIONS (6)
  - Deafness [Recovering/Resolving]
  - Fluid retention [Unknown]
  - Fatigue [Unknown]
  - Peripheral swelling [Unknown]
  - Somnolence [Unknown]
  - Depressed mood [Unknown]
